FAERS Safety Report 8958645 (Version 1)
Quarter: 2012Q4

REPORT INFORMATION
  Report Type: Spontaneous
  Country: QA (occurrence: None)
  Receive Date: 20121128
  Receipt Date: 20121128
  Transmission Date: 20130627
  Serious: Yes (Death, Other)
  Sender: FDA-Public Use
  Company Number: FK201203414

PATIENT
  Age: 60 Year
  Sex: Female

DRUGS (4)
  1. DEXAMETHASONE [Suspect]
     Indication: SPINAL CORD COMPRESSION
     Dosage: 8 mg, 1 in 12 hr
  2. DEXAMETHASONE [Suspect]
     Indication: SPINAL CORD COMPRESSION
     Dosage: 6 mg, 1 in 12 hr
  3. ATORVASTATIN [Suspect]
     Indication: HYPERLIPIDAEMIA
     Dosage: 20 mg, daily
  4. OMEPRAZOLE (OMEPRAZOLE) [Suspect]
     Indication: PEPTIC ULCER
     Dosage: 20 mg, daily

REACTIONS (5)
  - Rhabdomyolysis [None]
  - Urosepsis [None]
  - Drug interaction [None]
  - Dyspnoea [None]
  - Escherichia test positive [None]
